FAERS Safety Report 8762141 (Version 1)
Quarter: 2012Q4

REPORT INFORMATION
  Report Type: 
  Country: CA (occurrence: CA)
  Receive Date: 20120830
  Receipt Date: 20120830
  Transmission Date: 20130627
  Serious: Yes (Hospitalization)
  Sender: FDA-Public Use
  Company Number: CA-ELI_LILLY_AND_COMPANY-CA201208006507

PATIENT

DRUGS (1)
  1. ADCIRCA [Suspect]

REACTIONS (1)
  - Hospitalisation [Unknown]
